FAERS Safety Report 13611443 (Version 1)
Quarter: 2017Q2

REPORT INFORMATION
  Report Type: Spontaneous
  Country: US (occurrence: US)
  Receive Date: 20170605
  Receipt Date: 20170605
  Transmission Date: 20170830
  Serious: No
  Sender: FDA-Public Use
  Company Number: US-009507513-1705USA008292

PATIENT
  Age: 21 Year
  Sex: Female
  Weight: 52.15 kg

DRUGS (1)
  1. NEXPLANON [Suspect]
     Active Substance: ETONOGESTREL
     Indication: CONTRACEPTION
     Dosage: UNK, FOR 3 YEARS IN LEFT ARM
     Route: 059
     Dates: start: 20170112

REACTIONS (8)
  - Headache [Unknown]
  - Metrorrhagia [Not Recovered/Not Resolved]
  - Back pain [Unknown]
  - Nausea [Unknown]
  - Abdominal distension [Unknown]
  - Asthenia [Unknown]
  - Breast pain [Unknown]
  - Abdominal pain lower [Unknown]

NARRATIVE: CASE EVENT DATE: 2017
